FAERS Safety Report 10141345 (Version 2)
Quarter: 2014Q2

REPORT INFORMATION
  Report Type: Spontaneous
  Country: CN (occurrence: CN)
  Receive Date: 20140429
  Receipt Date: 20140517
  Transmission Date: 20141212
  Serious: Yes (Hospitalization)
  Sender: FDA-Public Use
  Company Number: CN-JNJFOC-20140410239

PATIENT
  Sex: Female
  Weight: 55 kg

DRUGS (1)
  1. TYLENOL [Suspect]
     Indication: COUGH
     Route: 048
     Dates: start: 20130209, end: 20130209

REACTIONS (4)
  - Arrhythmia [Recovered/Resolved]
  - Suffocation feeling [Recovered/Resolved]
  - Chest discomfort [Recovered/Resolved]
  - Dyspnoea [Recovered/Resolved]
